FAERS Safety Report 21280389 (Version 1)
Quarter: 2022Q3

REPORT INFORMATION
  Report Type: Spontaneous
  Country: US (occurrence: US)
  Receive Date: 20220901
  Receipt Date: 20220901
  Transmission Date: 20221027
  Serious: No
  Sender: FDA-Public Use
  Company Number: US-TARO PHARMACEUTICALS USA INC.-2022TAR00132

PATIENT

DRUGS (1)
  1. CLOBETASOL PROPIONATE [Suspect]
     Active Substance: CLOBETASOL PROPIONATE
     Indication: Fungal infection
     Dosage: UNK
     Route: 061

REACTIONS (1)
  - Escherichia vaginitis [Not Recovered/Not Resolved]

NARRATIVE: CASE EVENT DATE: 20220121
